FAERS Safety Report 13048440 (Version 12)
Quarter: 2018Q2

REPORT INFORMATION
  Report Type: Report from Study
  Country: CA (occurrence: CA)
  Receive Date: 20161221
  Receipt Date: 20180626
  Transmission Date: 20180711
  Serious: Yes (Other)
  Sender: FDA-Public Use
  Company Number: PHHY2016CA121412

PATIENT
  Age: 53 Year
  Sex: Female

DRUGS (11)
  1. SANDOSTATIN LAR DEPOT [Suspect]
     Active Substance: OCTREOTIDE ACETATE
     Dosage: 30 MG, QMO (ONCE A MONTH)
     Route: 030
     Dates: start: 20150917
  2. SANDOSTATIN LAR DEPOT [Suspect]
     Active Substance: OCTREOTIDE ACETATE
     Dosage: 60 MG, TIW (EVERY THREE WEEKS)
     Route: 030
     Dates: start: 20170419
  3. SANDOSTATIN [Suspect]
     Active Substance: OCTREOTIDE ACETATE
     Indication: NEUROENDOCRINE TUMOUR
     Dosage: 100 UG, TID
     Route: 058
     Dates: start: 201507, end: 2015
  4. SANDOSTATIN LAR DEPOT [Suspect]
     Active Substance: OCTREOTIDE ACETATE
     Indication: NEUROENDOCRINE TUMOUR
     Dosage: 20 MG, QMO (EVERY 4 WEEKS)
     Route: 030
     Dates: start: 20150902
  5. SANDOSTATIN LAR DEPOT [Suspect]
     Active Substance: OCTREOTIDE ACETATE
     Dosage: 60 MG, TIW (EVERY THREE WEEKS)
     Route: 030
     Dates: start: 20170515
  6. SANDOSTATIN LAR DEPOT [Suspect]
     Active Substance: OCTREOTIDE ACETATE
     Dosage: 60 MG, TIW (EVERY THREE WEEKS)
     Route: 030
     Dates: start: 20170608
  7. AFINITOR [Suspect]
     Active Substance: EVEROLIMUS
     Indication: NEUROENDOCRINE TUMOUR
     Dosage: 10 MG, BID
     Route: 048
     Dates: start: 20160714
  8. SANDOSTATIN LAR DEPOT [Suspect]
     Active Substance: OCTREOTIDE ACETATE
     Dosage: 60 MG, TIW (EVERY THREE WEEKS)
     Route: 030
     Dates: start: 20160623, end: 20170328
  9. SANDOSTATIN LAR DEPOT [Suspect]
     Active Substance: OCTREOTIDE ACETATE
     Dosage: 40 MG, QMO  (ONCE A MONTH)
     Route: 030
     Dates: start: 20151015
  10. SANDOSTATIN LAR DEPOT [Suspect]
     Active Substance: OCTREOTIDE ACETATE
     Dosage: 60 MG, QMO (ONCE A MONTH)
     Route: 030
     Dates: start: 20151124
  11. TRAZODONE [Concomitant]
     Active Substance: TRAZODONE HYDROCHLORIDE
     Indication: PRODUCT USED FOR UNKNOWN INDICATION
     Dosage: 50 MG, PRN (AT BEDTIME)
     Route: 048

REACTIONS (31)
  - Pain [Unknown]
  - Weight decreased [Unknown]
  - Vaginal infection [Unknown]
  - Diarrhoea [Unknown]
  - Flushing [Unknown]
  - Inflammation [Recovering/Resolving]
  - Nausea [Recovered/Resolved]
  - Urinary tract infection [Unknown]
  - Feeling cold [Unknown]
  - Dyspepsia [Recovered/Resolved]
  - Inappropriate schedule of drug administration [Unknown]
  - Needle issue [Unknown]
  - Decreased appetite [Recovered/Resolved]
  - Abdominal pain upper [Unknown]
  - Injection site haemorrhage [Unknown]
  - Body temperature decreased [Unknown]
  - Disturbance in attention [Unknown]
  - Blood pressure systolic increased [Unknown]
  - Back pain [Unknown]
  - Dyspepsia [Unknown]
  - Vomiting [Unknown]
  - Incorrect dose administered [Unknown]
  - Haemothorax [Unknown]
  - Diarrhoea [Recovered/Resolved]
  - Joint swelling [Unknown]
  - Oedema peripheral [Recovering/Resolving]
  - Anaemia [Unknown]
  - Erythema [Unknown]
  - Fatigue [Not Recovered/Not Resolved]
  - Rash [Unknown]
  - Injection site pain [Unknown]

NARRATIVE: CASE EVENT DATE: 201604
